FAERS Safety Report 5520101-4 (Version None)
Quarter: 2007Q4

REPORT INFORMATION
  Report Type: 
  Country: None (occurrence: None)
  Receive Date: 20071116
  Receipt Date: 20071103
  Transmission Date: 20080405
  Serious: Yes (Hospitalization, Other)
  Sender: FDA-Public Use
  Company Number: CA-SHR-CA-2007-007733

PATIENT
  Age: 44 Year
  Sex: Female
  Weight: 70 kg

DRUGS (14)
  1. BETASERON [Suspect]
     Indication: RELAPSING-REMITTING MULTIPLE SCLEROSIS
     Dosage: 8 MIU, EVERY 2D
     Route: 058
     Dates: start: 20011114, end: 20071020
  2. BETASERON [Suspect]
     Dosage: 8 MIU, EVERY 2D
     Route: 058
     Dates: start: 20071101
  3. CHOLESTYRAMINE [Concomitant]
     Dosage: 1 OTHER, UNK
     Route: 048
  4. TAMOXIFEN CITRATE [Concomitant]
     Dosage: 20 MG, UNK
     Route: 048
  5. TAMOXIFEN CITRATE [Concomitant]
     Dosage: 1 TAB(S), UNK
     Route: 048
  6. URSODIOL [Concomitant]
     Dosage: 500 MG, UNK
     Route: 048
  7. CIPRO [Concomitant]
     Dosage: 500 MG, UNK
     Route: 048
  8. FLAGYL [Concomitant]
     Dosage: 500 MG, UNK
     Route: 048
  9. SYNTHROID [Concomitant]
     Indication: HYPOTHYROIDISM
     Dosage: .175 MG, UNK
     Route: 048
  10. SYNTHROID [Concomitant]
     Dosage: 1 TAB(S), UNK
     Route: 048
  11. NORTRIPTYLINE HCL [Concomitant]
     Indication: ANTIDEPRESSANT THERAPY
     Dosage: 10 MG, UNK
     Route: 048
  12. NORTRIPTYLINE HCL [Concomitant]
     Dosage: 1 TAB(S), UNK
     Route: 048
  13. BACLOFEN [Concomitant]
     Dosage: 20 MG, UNK
     Route: 048
  14. BACLOFEN [Concomitant]
     Dosage: 1 TAB(S), UNK
     Route: 048

REACTIONS (7)
  - BILE DUCT OBSTRUCTION [None]
  - CHOLECYSTECTOMY [None]
  - DRUG DOSE OMISSION [None]
  - JAUNDICE [None]
  - MUSCULOSKELETAL STIFFNESS [None]
  - STENT OCCLUSION [None]
  - THYROID NEOPLASM [None]
